FAERS Safety Report 6382425-0 (Version None)
Quarter: 2009Q3

REPORT INFORMATION
  Report Type: 
  Country: None (occurrence: None)
  Receive Date: 20090928
  Receipt Date: 20090928
  Transmission Date: 20100115
  Serious: No
  Sender: FDA-Public Use
  Company Number: None

PATIENT
  Age: 82 Year
  Sex: Male
  Weight: 85 kg

DRUGS (2)
  1. OXYCODONE AND ACETAMINOPHEN [Suspect]
     Dosage: 1 TAB OTHER PO
     Route: 048
     Dates: start: 20081125, end: 20081128
  2. FENTANYL-100 [Suspect]
     Dosage: 25 MCG OTHER TOP
     Route: 061
     Dates: start: 20081125, end: 20081126

REACTIONS (2)
  - HYPOTENSION [None]
  - SOMNOLENCE [None]
